FAERS Safety Report 22968500 (Version 2)
Quarter: 2023Q4

REPORT INFORMATION
  Report Type: Spontaneous
  Country: JP (occurrence: JP)
  Receive Date: 20230921
  Receipt Date: 20231211
  Transmission Date: 20240110
  Serious: Yes (Other)
  Sender: FDA-Public Use
  Company Number: JP-ELI_LILLY_AND_COMPANY-JP202308003849

PATIENT
  Age: 50 Year
  Sex: Female

DRUGS (6)
  1. VERZENIO [Suspect]
     Active Substance: ABEMACICLIB
     Indication: Hormone receptor positive HER2 negative breast cancer
     Dosage: 150 MG, BID
     Route: 048
     Dates: start: 20230427, end: 20230720
  2. ARIMIDEX [Concomitant]
     Active Substance: ANASTROZOLE
     Indication: Hormone receptor positive HER2 negative breast cancer
     Dosage: 1 MG
     Route: 048
     Dates: start: 20230427
  3. LOPERAMIDE HYDROCHLORIDE [Concomitant]
     Active Substance: LOPERAMIDE HYDROCHLORIDE
     Indication: Diarrhoea
     Dosage: UNK, PRN
     Route: 048
     Dates: start: 20230427, end: 20230720
  4. MIYA-BM [Concomitant]
     Active Substance: CLOSTRIDIUM BUTYRICUM SPORES STRAIN M-55
     Indication: Gastrointestinal disorder prophylaxis
     Dosage: 1 G, TID
     Route: 048
     Dates: start: 20230427, end: 20230720
  5. NAUZELIN [Concomitant]
     Active Substance: DOMPERIDONE
     Dosage: UNK
  6. HERBALS [Concomitant]
     Active Substance: HERBALS
     Indication: Gastrointestinal disorder prophylaxis
     Dosage: 2.5 G, TID
     Route: 048
     Dates: start: 20230427, end: 20230720

REACTIONS (1)
  - Liver function test increased [Unknown]

NARRATIVE: CASE EVENT DATE: 20230720
